FAERS Safety Report 25257785 (Version 1)
Quarter: 2025Q2

REPORT INFORMATION
  Report Type: Spontaneous
  Country: IN (occurrence: IN)
  Receive Date: 20250430
  Receipt Date: 20250430
  Transmission Date: 20250717
  Serious: Yes (Other)
  Sender: RANBAXY
  Company Number: IN-SUN PHARMACEUTICAL INDUSTRIES LTD-2025R1-505842

PATIENT
  Age: 22 Year
  Sex: Male

DRUGS (9)
  1. RISPERIDONE [Suspect]
     Active Substance: RISPERIDONE
     Indication: Antipsychotic therapy
     Dosage: 3 MILLIGRAM, TID
     Route: 065
  2. OLANZAPINE [Suspect]
     Active Substance: OLANZAPINE
     Indication: Antipsychotic therapy
     Dosage: 5 MILLIGRAM, BID
     Route: 065
  3. TRIFLUOPERAZINE [Suspect]
     Active Substance: TRIFLUOPERAZINE HYDROCHLORIDE
     Indication: Antipsychotic therapy
     Dosage: 5 MILLIGRAM, QD
     Route: 065
  4. AMISULPRIDE [Suspect]
     Active Substance: AMISULPRIDE
     Indication: Antipsychotic therapy
     Dosage: 200 MILLIGRAM, BID
     Route: 065
  5. CLOZAPINE [Suspect]
     Active Substance: CLOZAPINE
     Indication: Antipsychotic therapy
     Dosage: 150 MILLIGRAM, QD
     Route: 065
  6. FLUPHENAZINE [Suspect]
     Active Substance: FLUPHENAZINE
     Indication: Antipsychotic therapy
     Route: 065
     Dates: start: 20220530
  7. FLUPHENAZINE [Suspect]
     Active Substance: FLUPHENAZINE
     Route: 065
     Dates: start: 20220612
  8. FLUPHENAZINE [Suspect]
     Active Substance: FLUPHENAZINE
     Route: 065
     Dates: start: 20220618
  9. FLUPENTIXOL [Suspect]
     Active Substance: FLUPENTIXOL
     Indication: Antipsychotic therapy
     Route: 065
     Dates: start: 20220618

REACTIONS (1)
  - Neuroleptic malignant syndrome [Recovered/Resolved]
